FAERS Safety Report 18510837 (Version 1)
Quarter: 2020Q4

REPORT INFORMATION
  Report Type: Spontaneous
  Country: US (occurrence: US)
  Receive Date: 20201116
  Receipt Date: 20201116
  Transmission Date: 20210114
  Serious: Yes (Disabling)
  Sender: FDA-Public Use
  Company Number: None

PATIENT
  Age: 39 Year
  Weight: 72 kg

DRUGS (1)
  1. INVEGA SUSTENNA [Suspect]
     Active Substance: PALIPERIDONE PALMITATE
     Indication: SCHIZOPHRENIA
     Route: 030
     Dates: start: 20201026

REACTIONS (5)
  - Chest pain [None]
  - Dehydration [None]
  - Respiratory rate increased [None]
  - Gastrointestinal disorder [None]
  - Pollakiuria [None]

NARRATIVE: CASE EVENT DATE: 20201031
